FAERS Safety Report 4545115-2 (Version None)
Quarter: 2005Q1

REPORT INFORMATION
  Report Type: 
  Country: None (occurrence: None)
  Receive Date: 20050104
  Receipt Date: 20050104
  Transmission Date: 20050727
  Serious: Yes (Hospitalization, Other)
  Sender: FDA-Public Use
  Company Number: None

PATIENT
  Sex: Male
  Weight: 81 kg

DRUGS (2)
  1. ROSIGLITAZONE 8 MG ? (UNKNOWN DOSE) [Suspect]
     Indication: DIABETES MELLITUS
     Dates: start: 20030910, end: 20030919
  2. UNASYN [Concomitant]

REACTIONS (2)
  - ABDOMINAL PAIN UPPER [None]
  - LIVER FUNCTION TEST ABNORMAL [None]
